FAERS Safety Report 4263873-1 (Version None)
Quarter: 2004Q1

REPORT INFORMATION
  Report Type: 
  Country: None (occurrence: None)
  Receive Date: 20040102
  Receipt Date: 20031230
  Transmission Date: 20041129
  Serious: Yes (Hospitalization)
  Sender: FDA-Public Use
  Company Number: 2003192197FR

PATIENT
  Age: 44 Year
  Sex: Female

DRUGS (1)
  1. TRELSTAR DEPOT [Suspect]
     Indication: ENDOMETRIOSIS
     Dosage: INTRAMUSCULAR
     Route: 030
     Dates: start: 20030923, end: 20030923

REACTIONS (3)
  - CONDITION AGGRAVATED [None]
  - MULTIPLE SCLEROSIS [None]
  - OPTIC NEURITIS RETROBULBAR [None]
